FAERS Safety Report 12304937 (Version 2)
Quarter: 2016Q3

REPORT INFORMATION
  Report Type: Spontaneous
  Country: US (occurrence: US)
  Receive Date: 20160426
  Receipt Date: 20160706
  Transmission Date: 20161109
  Serious: Yes (Hospitalization, Other)
  Sender: FDA-Public Use
  Company Number: US-PFIZER INC-2015231705

PATIENT
  Age: 73 Year
  Sex: Male
  Weight: 70.31 kg

DRUGS (2)
  1. SUTENT [Suspect]
     Active Substance: SUNITINIB MALATE
     Dosage: 37.5 MG, DAILY
     Route: 048
     Dates: start: 20150720, end: 20160404
  2. SUTENT [Suspect]
     Active Substance: SUNITINIB MALATE
     Indication: CHORDOMA
     Dosage: 37.5 MG, 1X/DAY
     Route: 048
     Dates: start: 201507, end: 20160401

REACTIONS (16)
  - Pharyngeal inflammation [Not Recovered/Not Resolved]
  - Pharyngeal disorder [Not Recovered/Not Resolved]
  - Feeding disorder [Not Recovered/Not Resolved]
  - Disease progression [Unknown]
  - Pulmonary oedema [Unknown]
  - Weight decreased [Not Recovered/Not Resolved]
  - Pharyngeal ulceration [Unknown]
  - Dyspnoea [Unknown]
  - Chordoma [Unknown]
  - Atrial fibrillation [Unknown]
  - Stomatitis [Recovered/Resolved]
  - Glossitis [Recovered/Resolved]
  - Oral pain [Recovered/Resolved]
  - Dysphagia [Not Recovered/Not Resolved]
  - Product use issue [Recovered/Resolved]
  - Ageusia [Recovered/Resolved]

NARRATIVE: CASE EVENT DATE: 201508
